FAERS Safety Report 7546315-X (Version None)
Quarter: 2011Q2

REPORT INFORMATION
  Report Type: 
  Country: None (occurrence: None)
  Receive Date: 20110614
  Receipt Date: 20060829
  Transmission Date: 20111010
  Serious: Yes (Hospitalization)
  Sender: FDA-Public Use
  Company Number: PHEH2006US07053

PATIENT
  Sex: Female
  Weight: 49.886 kg

DRUGS (3)
  1. PENICILLIN NOS [Concomitant]
  2. COUMADIN [Concomitant]
  3. EXJADE [Suspect]
     Indication: BLOOD IRON INCREASED
     Dosage: 1000 MG, QD
     Route: 048
     Dates: start: 20060101

REACTIONS (8)
  - PNEUMONIA [None]
  - SEPSIS [None]
  - RESPIRATORY FAILURE [None]
  - SICKLE CELL ANAEMIA WITH CRISIS [None]
  - RENAL DISORDER [None]
  - INTESTINAL PERFORATION [None]
  - ACUTE ABDOMEN [None]
  - PERITONITIS [None]
